FAERS Safety Report 21670492 (Version 4)
Quarter: 2022Q4

REPORT INFORMATION
  Report Type: Spontaneous
  Country: US (occurrence: US)
  Receive Date: 20221201
  Receipt Date: 20221222
  Transmission Date: 20230112
  Serious: No
  Sender: FDA-Public Use
  Company Number: US-BAUSCHBL-2022BNL002276

PATIENT
  Age: 51 Year
  Sex: Male
  Weight: 114.41 kg

DRUGS (8)
  1. BRIMONIDINE TARTRATE [Suspect]
     Active Substance: BRIMONIDINE TARTRATE
     Indication: Glaucoma
     Dosage: 3 DROPS IN RIGHT EYE
     Route: 047
  2. TIMOLOL MALEATE [Suspect]
     Active Substance: TIMOLOL MALEATE
     Indication: Glaucoma
     Route: 047
  3. VYZULTA [Concomitant]
     Active Substance: LATANOPROSTENE BUNOD
     Indication: Glaucoma
     Dosage: ONE TIME AT NIGHT
     Route: 065
  4. TIMOLOL BRIMONIDINE [Concomitant]
     Indication: Glaucoma
     Dosage: ONE TIME AT NIGHT
     Route: 065
  5. LORAZEPAM [Concomitant]
     Active Substance: LORAZEPAM
     Indication: Blood pressure measurement
  6. CIPROFLOXACIN [Concomitant]
     Active Substance: CIPROFLOXACIN
     Indication: Eye operation
     Dosage: 2-3 TIMES
  7. POLYTRIM [Concomitant]
     Active Substance: POLYMYXIN B SULFATE\TRIMETHOPRIM SULFATE
     Indication: Product used for unknown indication
     Dosage: 2-3 TIMES FOR 3 WEEKS
  8. TOBRAMYCIN [Concomitant]
     Active Substance: TOBRAMYCIN
     Indication: Product used for unknown indication

REACTIONS (6)
  - Reaction to preservatives [Recovered/Resolved]
  - Instillation site discomfort [Recovered/Resolved]
  - Instillation site erythema [Recovered/Resolved]
  - Instillation site irritation [Recovered/Resolved]
  - Suspected product quality issue [Unknown]
  - Product quality issue [Unknown]

NARRATIVE: CASE EVENT DATE: 20221120
